FAERS Safety Report 5373435-0 (Version None)
Quarter: 2007Q2

REPORT INFORMATION
  Report Type: 
  Country: None (occurrence: None)
  Receive Date: 20070626
  Receipt Date: 20070626
  Transmission Date: 20071010
  Serious: No
  Sender: FDA-Public Use
  Company Number: None

PATIENT
  Sex: Male
  Weight: 19.5047 kg

DRUGS (1)
  1. FLOVENT [Suspect]
     Indication: ASTHMA
     Dosage: 2 PUFFS  BID  INHAL
     Route: 055
     Dates: start: 20070423, end: 20070626

REACTIONS (4)
  - AGGRESSION [None]
  - FATIGUE [None]
  - INITIAL INSOMNIA [None]
  - PERSONALITY CHANGE [None]
